FAERS Safety Report 5087018-3 (Version None)
Quarter: 2006Q3

REPORT INFORMATION
  Report Type: 
  Country: None (occurrence: None)
  Receive Date: 20060818
  Receipt Date: 20060811
  Transmission Date: 20061208
  Serious: Yes (Other)
  Sender: FDA-Public Use
  Company Number: 2006039308

PATIENT
  Age: 54 Year
  Sex: Female
  Weight: 74.8435 kg

DRUGS (6)
  1. LIPITOR [Suspect]
     Indication: BLOOD CHOLESTEROL
     Dosage: 20 MG (1 IN 1 D)
  2. PREDNISONE TAB [Concomitant]
  3. HUMALOG [Concomitant]
  4. ZESTRIL [Concomitant]
  5. DURAGESIC-100 [Concomitant]
  6. FOLIC ACID [Concomitant]

REACTIONS (4)
  - BLOOD CHOLESTEROL INCREASED [None]
  - CARDIAC DISORDER [None]
  - ECONOMIC PROBLEM [None]
  - TREATMENT NONCOMPLIANCE [None]
